FAERS Safety Report 5759019-0 (Version None)
Quarter: 2008Q2

REPORT INFORMATION
  Report Type: 
  Country: None (occurrence: None)
  Receive Date: 20080604
  Receipt Date: 20080527
  Transmission Date: 20081010
  Serious: Yes (Death, Hospitalization, Other)
  Sender: FDA-Public Use
  Company Number: US-PFIZER INC-2006061835

PATIENT
  Sex: Female
  Weight: 59 kg

DRUGS (2)
  1. CELEBREX [Suspect]
     Indication: ARTHRITIS
     Dates: start: 20000907, end: 20030909
  2. BEXTRA [Suspect]
     Indication: ARTHRITIS
     Dates: start: 20020911, end: 20030909

REACTIONS (1)
  - CARDIAC FAILURE [None]
